FAERS Safety Report 4482840-6 (Version None)
Quarter: 2004Q4

REPORT INFORMATION
  Report Type: 
  Country: None (occurrence: None)
  Receive Date: 20041022
  Receipt Date: 20030407
  Transmission Date: 20050328
  Serious: Yes (Hospitalization, Other)
  Sender: FDA-Public Use
  Company Number: US-MERCK-0304USA00812

PATIENT
  Age: 80 Year
  Sex: Female
  Weight: 52 kg

DRUGS (4)
  1. VIOXX [Suspect]
     Indication: ARTHRITIS
     Route: 048
     Dates: end: 20011101
  2. PREMARIN [Concomitant]
     Indication: HORMONE REPLACEMENT THERAPY
     Route: 065
  3. SINGULAIR [Concomitant]
     Route: 065
  4. AZMACORT [Concomitant]
     Route: 055

REACTIONS (25)
  - ATRIAL FIBRILLATION [None]
  - BLOOD ALBUMIN DECREASED [None]
  - BLOOD CHOLESTEROL INCREASED [None]
  - BRONCHIAL INFECTION [None]
  - BRONCHIECTASIS [None]
  - BRONCHITIS [None]
  - BRONCHITIS CHRONIC [None]
  - CANDIDIASIS [None]
  - CARDIAC FAILURE CONGESTIVE [None]
  - CEREBROVASCULAR ACCIDENT [None]
  - CHRONIC OBSTRUCTIVE AIRWAYS DISEASE [None]
  - CONJUNCTIVITIS [None]
  - CORNEAL DISORDER [None]
  - DRUG HYPERSENSITIVITY [None]
  - DYSPEPSIA [None]
  - FALL [None]
  - HIATUS HERNIA [None]
  - NAUSEA [None]
  - OEDEMA PERIPHERAL [None]
  - OXYGEN SATURATION DECREASED [None]
  - PAIN [None]
  - PNEUMONIA [None]
  - PSEUDOMONAS INFECTION [None]
  - SKIN LACERATION [None]
  - TREMOR [None]
